FAERS Safety Report 5616213-7 (Version None)
Quarter: 2008Q1

REPORT INFORMATION
  Report Type: 
  Country: None (occurrence: None)
  Receive Date: 20080204
  Receipt Date: 20080121
  Transmission Date: 20080703
  Serious: Yes (Other)
  Sender: FDA-Public Use
  Company Number: S07-IRL-06189-01

PATIENT
  Age: 42 Year
  Sex: Female

DRUGS (2)
  1. LEXAPRO [Suspect]
     Indication: DEPRESSION
     Dosage: 25 MG QD PO
     Route: 048
     Dates: start: 20040101
  2. ESKIM (OMEGA-3 TRIGLYCERIDES) [Concomitant]

REACTIONS (2)
  - HAEMORRHAGE SUBCUTANEOUS [None]
  - OVERDOSE [None]
